FAERS Safety Report 6517431-6 (Version None)
Quarter: 2009Q4

REPORT INFORMATION
  Report Type: 
  Country: None (occurrence: None)
  Receive Date: 20091224
  Receipt Date: 20091216
  Transmission Date: 20100525
  Serious: Yes (Hospitalization)
  Sender: FDA-Public Use
  Company Number: US-BIOGENIDEC-2008BI008834

PATIENT
  Age: 47 Year
  Sex: Female

DRUGS (12)
  1. AVONEX [Suspect]
     Indication: MULTIPLE SCLEROSIS
     Route: 030
     Dates: start: 20030801, end: 20080301
  2. AVONEX [Suspect]
     Route: 030
     Dates: start: 19981001, end: 20030801
  3. AVONEX [Suspect]
     Route: 030
  4. PROVIGIL [Concomitant]
     Indication: DRUG USE FOR UNKNOWN INDICATION
  5. DETROL [Concomitant]
     Indication: DRUG USE FOR UNKNOWN INDICATION
  6. REQUIP [Concomitant]
     Indication: DRUG USE FOR UNKNOWN INDICATION
  7. AVALIDE [Concomitant]
     Indication: DRUG USE FOR UNKNOWN INDICATION
  8. ULTRAM [Concomitant]
     Indication: DRUG USE FOR UNKNOWN INDICATION
  9. OMEPRAZOLE [Concomitant]
     Indication: DRUG USE FOR UNKNOWN INDICATION
  10. LYRICA [Concomitant]
     Indication: DRUG USE FOR UNKNOWN INDICATION
  11. NORVASC [Concomitant]
     Indication: DRUG USE FOR UNKNOWN INDICATION
  12. MOBIC [Concomitant]
     Indication: DRUG USE FOR UNKNOWN INDICATION

REACTIONS (4)
  - HAEMORRHAGIC ANAEMIA [None]
  - LOSS OF CONSCIOUSNESS [None]
  - MENORRHAGIA [None]
  - UTERINE POLYP [None]
